FAERS Safety Report 10524236 (Version 1)
Quarter: 2014Q4

REPORT INFORMATION
  Report Type: Report from Study
  Country: CA (occurrence: CA)
  Receive Date: 20141017
  Receipt Date: 20141017
  Transmission Date: 20150528
  Serious: Yes (Other)
  Sender: FDA-Public Use
  Company Number: CA-AMGEN-CANSL2014079678

PATIENT
  Age: 70 Year
  Sex: Female

DRUGS (2)
  1. PROLIA [Suspect]
     Active Substance: DENOSUMAB
     Indication: FRACTURE
     Dosage: 60 MG, Q6MO
     Route: 058
     Dates: start: 20140515
  2. ASAPHEN [Concomitant]
     Active Substance: ASPIRIN

REACTIONS (3)
  - Neoplasm malignant [Not Recovered/Not Resolved]
  - Synovial cyst [Not Recovered/Not Resolved]
  - Malaise [Not Recovered/Not Resolved]

NARRATIVE: CASE EVENT DATE: 2014
